FAERS Safety Report 9861996 (Version 2)
Quarter: 2014Q2

REPORT INFORMATION
  Report Type: Spontaneous
  Country: US (occurrence: US)
  Receive Date: 20140203
  Receipt Date: 20140422
  Transmission Date: 20141212
  Serious: Yes (Other)
  Sender: FDA-Public Use
  Company Number: US-B.I. PHARMACEUTICALS,INC./RIDGEFIELD-2014-BI-04227BP

PATIENT
  Age: 71 Year
  Sex: Male
  Weight: 104.78 kg

DRUGS (5)
  1. TRADJENTA [Suspect]
     Indication: TYPE 2 DIABETES MELLITUS
     Dosage: 5 MG
     Route: 048
     Dates: start: 20110701, end: 201201
  2. TESTOSTERONE GEL [Concomitant]
     Route: 065
  3. TEMAZEPAM [Concomitant]
     Route: 065
  4. LISINOPRIL HCTZ [Concomitant]
     Route: 065
  5. HYDROCODONE [Concomitant]
     Route: 065

REACTIONS (1)
  - Lymphoma [Not Recovered/Not Resolved]
